FAERS Safety Report 10208259 (Version 1)
Quarter: 2014Q2

REPORT INFORMATION
  Report Type: Spontaneous
  Country: US (occurrence: US)
  Receive Date: 20140530
  Receipt Date: 20140530
  Transmission Date: 20141212
  Serious: No
  Sender: FDA-Public Use
  Company Number: US-PURDUE-USA-2014-0112222

PATIENT
  Sex: Female

DRUGS (1)
  1. MORPHINE SULFATE EXTENDED-RELEASE TABLETS (RHODES 74-769) [Suspect]
     Indication: PAIN
     Dosage: 15 MG, BID
     Route: 048
     Dates: start: 201402

REACTIONS (2)
  - Drug ineffective [Unknown]
  - Constipation [Not Recovered/Not Resolved]
